FAERS Safety Report 8910869 (Version 1)
Quarter: 2012Q4

REPORT INFORMATION
  Report Type: Spontaneous
  Country: IT (occurrence: None)
  Receive Date: 20121113
  Receipt Date: 20121113
  Transmission Date: 20130627
  Serious: Yes (Hospitalization)
  Sender: FDA-Public Use
  Company Number: 1486777

PATIENT
  Age: 64 Year
  Sex: Female

DRUGS (4)
  1. METHOTREXATE [Suspect]
     Indication: NON-HODGKIN^S LYMPHOMA
     Dosage: Not reported, unknown
  2. ARACYTIN [Suspect]
     Indication: NON-HODGKIN^S LYMPHOMA
     Dosage: not reported, unknown
  3. BLEOMYCIN [Suspect]
     Indication: NON-HODGKIN^S LYMPHOMA
     Dosage: not reported, unknown
  4. VINCRISTINE [Suspect]
     Indication: NON-HODGKIN^S LYMPHOMA

REACTIONS (4)
  - Arthritis bacterial [None]
  - White blood cell count decreased [None]
  - Normochromic normocytic anaemia [None]
  - Neutropenia [None]
